FAERS Safety Report 12745777 (Version 1)
Quarter: 2016Q3

REPORT INFORMATION
  Report Type: Spontaneous
  Country: US (occurrence: US)
  Receive Date: 20160915
  Receipt Date: 20160915
  Transmission Date: 20161109
  Serious: No
  Sender: FDA-Public Use
  Company Number: US-ADAPT PHARMA INC-2016ADP00076

PATIENT
  Age: 24 Year
  Sex: Male

DRUGS (6)
  1. EVZIO [Suspect]
     Active Substance: NALOXONE HYDROCHLORIDE
     Dosage: UNK, ONCE
     Route: 065
     Dates: start: 2016, end: 2016
  2. HEROIN [Suspect]
     Active Substance: DIACETYLMORPHINE
     Dosage: UNK, UNK
     Route: 065
  3. BENZODIAZAPINES [Suspect]
     Active Substance: BENZODIAZEPINE
     Dosage: UNK, UNK
     Route: 065
  4. NARCAN [Suspect]
     Active Substance: NALOXONE HYDROCHLORIDE
     Indication: OVERDOSE
     Dosage: 4 MG, TWICE
     Route: 045
     Dates: start: 2016, end: 2016
  5. FENTANYL. [Suspect]
     Active Substance: FENTANYL
     Dosage: UNK, UNK
     Route: 065
  6. XANAX [Suspect]
     Active Substance: ALPRAZOLAM
     Dosage: UNK, UNK
     Route: 065

REACTIONS (6)
  - Hypopnoea [Recovering/Resolving]
  - Inappropriate schedule of drug administration [Recovered/Resolved]
  - Malaise [None]
  - Unresponsive to stimuli [None]
  - Vomiting [Recovered/Resolved]
  - Withdrawal syndrome [None]

NARRATIVE: CASE EVENT DATE: 2016
